FAERS Safety Report 10081453 (Version 1)
Quarter: 2014Q2

REPORT INFORMATION
  Report Type: Report from Study
  Country: US (occurrence: US)
  Receive Date: 20140416
  Receipt Date: 20140416
  Transmission Date: 20141212
  Serious: Yes (Hospitalization, Other)
  Sender: FDA-Public Use
  Company Number: US-ASTRAZENECA-2014SE24913

PATIENT
  Age: 55 Year
  Sex: Male
  Weight: 99.3 kg

DRUGS (9)
  1. ASPIRIN [Concomitant]
     Indication: STENT PLACEMENT
     Route: 048
     Dates: start: 201401
  2. ISOSORB [Concomitant]
     Indication: CHEST PAIN
     Route: 048
     Dates: start: 201403
  3. LISINOPRIL [Suspect]
     Indication: BLOOD PRESSURE ABNORMAL
     Route: 048
     Dates: start: 2000
  4. BRILINTA [Suspect]
     Indication: MYOCARDIAL INFARCTION
     Route: 048
     Dates: start: 201401
  5. BRILINTA [Suspect]
     Indication: STENT PLACEMENT
     Route: 048
     Dates: start: 201401
  6. LOPRESSOR [Concomitant]
     Indication: BLOOD PRESSURE ABNORMAL
     Route: 048
     Dates: start: 2008
  7. ARTHROTECH [Concomitant]
     Indication: ARTHRITIS
     Route: 048
     Dates: start: 2013
  8. METFORMIN [Concomitant]
     Indication: BLOOD GLUCOSE ABNORMAL
     Route: 048
     Dates: start: 2013
  9. ASPIRIN [Concomitant]
     Indication: MYOCARDIAL INFARCTION
     Route: 048
     Dates: start: 201401

REACTIONS (5)
  - Myocardial infarction [Unknown]
  - Chest pain [Unknown]
  - Coronary artery occlusion [Unknown]
  - Cataract [Not Recovered/Not Resolved]
  - Contusion [Unknown]
